FAERS Safety Report 16802246 (Version 2)
Quarter: 2021Q4

REPORT INFORMATION
  Report Type: Spontaneous
  Country: US (occurrence: US)
  Receive Date: 20190912
  Receipt Date: 20211004
  Transmission Date: 20220303
  Serious: Yes (Hospitalization, Other)
  Sender: FDA-Public Use
  Company Number: US-OTSUKA-2019_031700

PATIENT
  Age: 52 Year
  Sex: Female

DRUGS (6)
  1. REXULTI [Suspect]
     Active Substance: BREXPIPRAZOLE
     Indication: Bipolar disorder
     Dosage: 1 MG, UNK
     Route: 065
  2. REXULTI [Suspect]
     Active Substance: BREXPIPRAZOLE
     Dosage: 2 MG, UNK
     Route: 065
  3. REXULTI [Suspect]
     Active Substance: BREXPIPRAZOLE
     Dosage: 3 MG, UNK
     Route: 065
  4. REXULTI [Suspect]
     Active Substance: BREXPIPRAZOLE
     Dosage: 3.5 MG, UNK (FOR 1 WEEK )
     Route: 065
     Dates: start: 2019, end: 2019
  5. REXULTI [Suspect]
     Active Substance: BREXPIPRAZOLE
     Dosage: 4 MG, UNK
     Route: 065
     Dates: start: 201909
  6. ABILIFY [Suspect]
     Active Substance: ARIPIPRAZOLE
     Indication: Product used for unknown indication
     Dosage: UNK
     Route: 065
     Dates: start: 20170615, end: 20170616

REACTIONS (7)
  - Suicide attempt [Unknown]
  - Intentional overdose [Unknown]
  - Osteoarthritis [Not Recovered/Not Resolved]
  - Depression [Unknown]
  - Myalgia [Not Recovered/Not Resolved]
  - Product use in unapproved indication [Unknown]
  - Insurance issue [Unknown]

NARRATIVE: CASE EVENT DATE: 20170616
